FAERS Safety Report 10759407 (Version 1)
Quarter: 2015Q1

REPORT INFORMATION
  Report Type: Other
  Country: US (occurrence: US)
  Receive Date: 20150203
  Receipt Date: 20150203
  Transmission Date: 20150721
  Serious: Yes (Death)
  Sender: FDA-Public Use
  Company Number: US-FRI-1000074206

PATIENT
  Age: 34 Year
  Sex: Female

DRUGS (12)
  1. GABAPENTIN. [Suspect]
     Active Substance: GABAPENTIN
  2. LINACLOTIDE [Suspect]
     Active Substance: LINACLOTIDE
  3. DICLOFENAC [Suspect]
     Active Substance: DICLOFENAC
  4. ONDANSETRON [Suspect]
     Active Substance: ONDANSETRON
  5. LUBIPROSTONE [Suspect]
     Active Substance: LUBIPROSTONE
  6. SERTRALINE [Suspect]
     Active Substance: SERTRALINE HYDROCHLORIDE
  7. ESCITALOPRAM [Suspect]
     Active Substance: ESCITALOPRAM OXALATE
  8. TRAMADOL [Suspect]
     Active Substance: TRAMADOL
  9. ZOLPIDEM [Suspect]
     Active Substance: ZOLPIDEM\ZOLPIDEM TARTRATE
  10. AMITRIPTYLINE [Suspect]
     Active Substance: AMITRIPTYLINE
  11. ACETAMINOPHEN/HYDROCODONE [Suspect]
     Active Substance: ACETAMINOPHEN\HYDROCODONE
  12. LIOTHYRONINE [Suspect]
     Active Substance: LIOTHYRONINE

REACTIONS (2)
  - Completed suicide [Fatal]
  - Cardio-respiratory arrest [Fatal]
